FAERS Safety Report 17136176 (Version 1)
Quarter: 2019Q4

REPORT INFORMATION
  Report Type: Spontaneous
  Country: IN (occurrence: IN)
  Receive Date: 20191210
  Receipt Date: 20191210
  Transmission Date: 20200122
  Serious: Yes (Death, Hospitalization)
  Sender: FDA-Public Use
  Company Number: IN-PFIZER INC-2017134172

PATIENT
  Age: 50 Year
  Sex: Female

DRUGS (6)
  1. ZOLEDRONIC ACID [Concomitant]
     Active Substance: ZOLEDRONIC ACID
     Dosage: UNK, (8TH DOSE)
     Route: 042
     Dates: start: 20171129
  2. PALBACE [Suspect]
     Active Substance: PALBOCICLIB
     Indication: BREAST CANCER METASTATIC
     Dosage: 125 MG, CYCLIC (1X/DAY, 21 DAYS THEN 7 DAYS OFF)
     Route: 048
     Dates: start: 20170325
  3. LETROZOLE. [Concomitant]
     Active Substance: LETROZOLE
     Dosage: 2.5 MG, 1X/DAY (X1 MONTH)
     Dates: start: 201703
  4. ZOLEDRONIC ACID [Concomitant]
     Active Substance: ZOLEDRONIC ACID
     Dosage: 4 MG, MONTHLY
     Route: 042
     Dates: start: 20180413
  5. ZOLEDRONIC ACID [Concomitant]
     Active Substance: ZOLEDRONIC ACID
     Dosage: UNK, (9TH DOSE)
     Route: 042
     Dates: start: 20171229
  6. ZOLEDRONIC ACID [Concomitant]
     Active Substance: ZOLEDRONIC ACID
     Dosage: UNK, (1ST DOSE)
     Route: 042
     Dates: start: 20170321

REACTIONS (7)
  - Neoplasm progression [Fatal]
  - Neutrophil count decreased [Unknown]
  - Fear [Unknown]
  - Feeding disorder [Unknown]
  - White blood cell count decreased [Unknown]
  - Bone pain [Unknown]
  - Vomiting [Not Recovered/Not Resolved]

NARRATIVE: CASE EVENT DATE: 2017
